FAERS Safety Report 14766235 (Version 1)
Quarter: 2018Q2

REPORT INFORMATION
  Report Type: Report from Study
  Country: US (occurrence: US)
  Receive Date: 20180416
  Receipt Date: 20180416
  Transmission Date: 20180711
  Serious: Yes (Other)
  Sender: FDA-Public Use
  Company Number: US-EXELIXIS-CABO-18013445

PATIENT
  Sex: Male

DRUGS (16)
  1. ATORVASTATIN [Concomitant]
     Active Substance: ATORVASTATIN
  2. LUTEIN [Concomitant]
     Active Substance: LUTEIN
  3. CABOMETYX [Suspect]
     Active Substance: CABOZANTINIB S-MALATE
     Indication: RENAL CANCER
     Dosage: 60 MG, QD
     Route: 048
  4. NIACIN. [Concomitant]
     Active Substance: NIACIN
  5. BRILINTA [Concomitant]
     Active Substance: TICAGRELOR
  6. COREG [Concomitant]
     Active Substance: CARVEDILOL
  7. VITAMIN D [Concomitant]
     Active Substance: CHOLECALCIFEROL
  8. GARLIC. [Concomitant]
     Active Substance: GARLIC
  9. OXYCODONE W/APAP [Concomitant]
     Active Substance: ACETAMINOPHEN\OXYCODONE HYDROCHLORIDE
  10. BENZONATATE. [Concomitant]
     Active Substance: BENZONATATE
  11. LISINOPRIL. [Concomitant]
     Active Substance: LISINOPRIL
  12. MULTIVITAMIN [Concomitant]
     Active Substance: VITAMINS
  13. LISINOPRIL H [Concomitant]
  14. ASPIRIN. [Concomitant]
     Active Substance: ASPIRIN
  15. CALCIUM [Concomitant]
     Active Substance: CALCIUM
  16. VITAMIN D3 [Concomitant]
     Active Substance: CHOLECALCIFEROL

REACTIONS (5)
  - Diarrhoea [Not Recovered/Not Resolved]
  - Rash [Not Recovered/Not Resolved]
  - Intestinal obstruction [Recovered/Resolved]
  - Weight decreased [Recovered/Resolved]
  - Malignant neoplasm progression [Not Recovered/Not Resolved]
